FAERS Safety Report 4373271-8 (Version None)
Quarter: 2004Q2

REPORT INFORMATION
  Report Type: 
  Country: None (occurrence: None)
  Receive Date: 20040608
  Receipt Date: 20040527
  Transmission Date: 20050107
  Serious: Yes (Other)
  Sender: FDA-Public Use
  Company Number: AU-GLAXOSMITHKLINE-B0334269A

PATIENT
  Age: 32 Year
  Sex: Female

DRUGS (2)
  1. PAROXETINE HCL [Suspect]
     Indication: DEPRESSION
     Route: 065
  2. EFFEXOR [Suspect]
     Indication: DEPRESSION
     Route: 065

REACTIONS (3)
  - PHYSICAL ASSAULT [None]
  - SUICIDE ATTEMPT [None]
  - THINKING ABNORMAL [None]
